FAERS Safety Report 19553879 (Version 1)
Quarter: 2021Q3

REPORT INFORMATION
  Report Type: Spontaneous
  Country: PL (occurrence: PL)
  Receive Date: 20210715
  Receipt Date: 20210715
  Transmission Date: 20211014
  Serious: Yes (Hospitalization, Other)
  Sender: FDA-Public Use
  Company Number: PL-GLAXOSMITHKLINE-PL2021EME150339

PATIENT
  Age: 62 Year
  Sex: Female

DRUGS (5)
  1. VALPROIC ACID. [Suspect]
     Active Substance: VALPROIC ACID
     Dosage: 1000 MG, 1D
  2. LAMOTRIGINE. [Suspect]
     Active Substance: LAMOTRIGINE
     Dosage: 100 MG, 1D
     Dates: start: 2017
  3. VALPROIC ACID. [Suspect]
     Active Substance: VALPROIC ACID
     Indication: EPILEPSY
     Dosage: 1.5 G, 1D
  4. LACOSAMIDE. [Suspect]
     Active Substance: LACOSAMIDE
     Indication: EPILEPSY
     Dosage: 200 MG, 1D
     Dates: start: 2016
  5. LAMOTRIGINE. [Suspect]
     Active Substance: LAMOTRIGINE
     Indication: EPILEPSY
     Dosage: 250 MG, 1D
     Dates: start: 2017

REACTIONS (14)
  - Tremor [Recovering/Resolving]
  - Balance disorder [Recovering/Resolving]
  - Dysmetria [Recovering/Resolving]
  - Limb discomfort [Recovering/Resolving]
  - Resting tremor [Recovering/Resolving]
  - Loss of personal independence in daily activities [Recovering/Resolving]
  - Arteriosclerosis [Recovering/Resolving]
  - Cerebral atrophy [Recovering/Resolving]
  - Head titubation [Recovering/Resolving]
  - Gait disturbance [Recovered/Resolved]
  - Cerebellar syndrome [Recovering/Resolving]
  - Nystagmus [Recovering/Resolving]
  - Cognitive disorder [Recovering/Resolving]
  - Intention tremor [Recovering/Resolving]
